FAERS Safety Report 8856992 (Version 1)
Quarter: 2012Q4

REPORT INFORMATION
  Report Type: Spontaneous
  Country: US (occurrence: None)
  Receive Date: 20121016
  Receipt Date: 20121016
  Transmission Date: 20130627
  Serious: Yes (Other)
  Sender: FDA-Public Use
  Company Number: 2012PROUSA01954

PATIENT
  Age: 81 Year
  Sex: Male
  Weight: 97.1 kg

DRUGS (10)
  1. PROVENGE (SIPULEUCEL-T) SUSPENSION, 250ML [Suspect]
     Indication: PROSTATE CANCER METASTATIC
     Route: 042
     Dates: start: 20120820, end: 20120820
  2. LEVOXYL (LEVOTHYROXINE SODIUM) [Concomitant]
  3. PLAVIX (CLOPIDOGREL BISULFATE) [Concomitant]
  4. ATENOLOL [Concomitant]
  5. ASPIRIN (ACETYLSALICYLIC ACID) [Concomitant]
  6. LIPITOR (ATORVASTATIN CALCIUM) [Concomitant]
  7. ISOSORBIDE MONONITRATE [Concomitant]
  8. FLOMAX (TAMSULOSIN HYDROCHLORIDE) [Concomitant]
  9. NORVASC (AMLODIPINE BESILATE) [Concomitant]
  10. BICALUTAMIDE [Concomitant]

REACTIONS (8)
  - Neuroendocrine carcinoma [None]
  - Malaise [None]
  - Dyspnoea [None]
  - Influenza like illness [None]
  - Dizziness [None]
  - Aspartate aminotransferase increased [None]
  - Alanine aminotransferase increased [None]
  - Blood alkaline phosphatase increased [None]
